FAERS Safety Report 24436667 (Version 1)
Quarter: 2024Q4

REPORT INFORMATION
  Report Type: Report from Study
  Country: CN (occurrence: CN)
  Receive Date: 20241015
  Receipt Date: 20241015
  Transmission Date: 20250115
  Serious: Yes (Other)
  Sender: UCB
  Company Number: CN-UCBSA-2024051650

PATIENT

DRUGS (2)
  1. LEVETIRACETAM [Suspect]
     Active Substance: LEVETIRACETAM
     Indication: Epilepsy
     Dosage: 10 MILLIGRAM/KILOGRAM, 2X/DAY (BID)
     Route: 048
  2. LEVETIRACETAM [Suspect]
     Active Substance: LEVETIRACETAM
     Dosage: 30 MILLIGRAM/KILOGRAM, 2X/DAY (BID)
     Route: 048

REACTIONS (5)
  - Renal impairment [Unknown]
  - Hepatic function abnormal [Unknown]
  - Abnormal behaviour [Unknown]
  - Somnolence [Unknown]
  - Drug ineffective [Unknown]
